FAERS Safety Report 6505733-9 (Version None)
Quarter: 2009Q4

REPORT INFORMATION
  Report Type: 
  Country: None (occurrence: None)
  Receive Date: 20091218
  Receipt Date: 20091209
  Transmission Date: 20100525
  Serious: Yes (Other)
  Sender: FDA-Public Use
  Company Number: FR-ABBOTT-09P-056-0610688-00

PATIENT
  Sex: Male
  Weight: 33 kg

DRUGS (1)
  1. ENANTONE 11.25 MG [Suspect]
     Indication: PRECOCIOUS PUBERTY
     Route: 050
     Dates: start: 20090127, end: 20090714

REACTIONS (2)
  - INJECTION SITE ABSCESS [None]
  - INJECTION SITE NODULE [None]
